FAERS Safety Report 25467281 (Version 3)
Quarter: 2025Q3

REPORT INFORMATION
  Report Type: Spontaneous
  Country: GB (occurrence: GB)
  Receive Date: 20250623
  Receipt Date: 20250723
  Transmission Date: 20251021
  Serious: Yes (Death, Hospitalization)
  Sender: CSL BEHRING
  Company Number: GB-BEH-2025209962

PATIENT
  Sex: Male

DRUGS (2)
  1. HIZENTRA [Suspect]
     Active Substance: HUMAN IMMUNOGLOBULIN G
     Indication: Peripheral nerve hyperexcitability
     Dosage: 12 G, QW
     Route: 058
  2. HIZENTRA [Suspect]
     Active Substance: HUMAN IMMUNOGLOBULIN G
     Dosage: 12 MG, QW
     Route: 058

REACTIONS (3)
  - Neoplasm malignant [Fatal]
  - Therapy interrupted [Unknown]
  - Off label use [Unknown]
